FAERS Safety Report 7738697-0 (Version None)
Quarter: 2011Q3

REPORT INFORMATION
  Report Type: 
  Country: None (occurrence: None)
  Receive Date: 20110908
  Receipt Date: 20110906
  Transmission Date: 20111222
  Serious: No
  Sender: FDA-Public Use
  Company Number: US-PFIZER INC-2011208681

PATIENT
  Sex: Female
  Weight: 61.2 kg

DRUGS (3)
  1. LYRICA [Suspect]
     Indication: FIBROMYALGIA
     Dosage: 150 MG, 2X/DAY
     Route: 048
     Dates: start: 20100101
  2. CELEBREX [Concomitant]
     Indication: OSTEOARTHRITIS
     Dosage: UNK
  3. ACETYLSALICYLIC ACID [Concomitant]
     Dosage: 81 MG, UNK

REACTIONS (5)
  - ALOPECIA [None]
  - HAIR GROWTH ABNORMAL [None]
  - TREMOR [None]
  - NAIL INJURY [None]
  - NAIL DISORDER [None]
